FAERS Safety Report 7298517-8 (Version None)
Quarter: 2011Q1

REPORT INFORMATION
  Report Type: 
  Country: None (occurrence: None)
  Receive Date: 20110204
  Receipt Date: 20101224
  Transmission Date: 20110831
  Serious: Yes (Hospitalization)
  Sender: FDA-Public Use
  Company Number: 009481

PATIENT
  Sex: Female
  Weight: 8.4 kg

DRUGS (3)
  1. LEVETIRACETAM [Suspect]
     Indication: EPILEPSY
     Dosage: (ORAL)
     Route: 048
     Dates: start: 20090512
  2. VIGABATRIN [Concomitant]
  3. LAMOTRIGINE [Concomitant]

REACTIONS (1)
  - NO ADVERSE EVENT [None]
